FAERS Safety Report 5390946-2 (Version None)
Quarter: 2007Q3

REPORT INFORMATION
  Report Type: 
  Country: None (occurrence: None)
  Receive Date: 20070717
  Receipt Date: 20070703
  Transmission Date: 20080115
  Serious: Yes (Other)
  Sender: FDA-Public Use
  Company Number: 158471USA

PATIENT
  Age: 45 Year
  Sex: 0

DRUGS (1)
  1. COPAXONE [Suspect]
     Indication: MULTIPLE SCLEROSIS
     Dosage: 20 MG, SUBCUTANEOUS
     Route: 058
     Dates: start: 20050101

REACTIONS (3)
  - DRUG INTERACTION [None]
  - TREATMENT NONCOMPLIANCE [None]
  - TUBERCULOSIS [None]
